FAERS Safety Report 4660556-0 (Version None)
Quarter: 2005Q2

REPORT INFORMATION
  Report Type: 
  Country: None (occurrence: None)
  Receive Date: 20050512
  Receipt Date: 20050214
  Transmission Date: 20051028
  Serious: Yes (Hospitalization)
  Sender: FDA-Public Use
  Company Number: IT-ROCHE-395227

PATIENT
  Age: 60 Year
  Sex: Female
  Weight: 87 kg

DRUGS (4)
  1. PEG-INTERFERON ALFA 2A (RO 25-8310) [Suspect]
     Route: 058
     Dates: start: 20050116, end: 20050213
  2. PEG-INTERFERON ALFA 2A (RO 25-8310) [Suspect]
     Route: 058
     Dates: start: 20050220
  3. RIBAVIRIN [Suspect]
     Route: 048
     Dates: start: 20050116, end: 20050213
  4. RIBAVIRIN [Suspect]
     Route: 048
     Dates: start: 20050215

REACTIONS (1)
  - ATRIAL FIBRILLATION [None]
